FAERS Safety Report 7379625-X (Version None)
Quarter: 2011Q1

REPORT INFORMATION
  Report Type: 
  Country: None (occurrence: None)
  Receive Date: 20110329
  Receipt Date: 20100329
  Transmission Date: 20110831
  Serious: No
  Sender: FDA-Public Use
  Company Number: US-BAYER-201019055NA

PATIENT
  Sex: Female

DRUGS (1)
  1. MIRENA [Suspect]
     Indication: CONTRACEPTION
     Dosage: 20 ?G/D, CONT
     Dates: start: 20090801

REACTIONS (6)
  - PAIN IN EXTREMITY [None]
  - AMENORRHOEA [None]
  - NAUSEA [None]
  - FATIGUE [None]
  - MEDICAL DEVICE COMPLICATION [None]
  - CHEST PAIN [None]
